FAERS Safety Report 8586506-2 (Version None)
Quarter: 2012Q3

REPORT INFORMATION
  Report Type: 
  Country: None (occurrence: None)
  Receive Date: 20120810
  Receipt Date: 20120731
  Transmission Date: 20120928
  Serious: Yes (Hospitalization)
  Sender: FDA-Public Use
  Company Number: NL-ROCHE-1095459

PATIENT
  Sex: Male

DRUGS (3)
  1. XELODA [Suspect]
     Indication: GASTRIC CANCER
     Dosage: LAST DOSE WAS ADMINISTERED ON 24/JUL/2012
     Route: 048
     Dates: start: 20120123
  2. CISPLATIN [Suspect]
     Indication: GASTRIC CANCER
     Dosage: LAST DOSE WAS ADMINISTERED ON 10/JUL/2012
     Route: 042
     Dates: start: 20120123
  3. EPIRUBICIN HYDROCHLORIDE [Suspect]
     Indication: GASTRIC CANCER
     Dosage: LAST DOSE WAS ADMINISTERED ON 10/JUL/2012
     Route: 042
     Dates: start: 20120123

REACTIONS (1)
  - DIVERTICULAR PERFORATION [None]
